FAERS Safety Report 6418485-8 (Version None)
Quarter: 2009Q4

REPORT INFORMATION
  Report Type: 
  Country: None (occurrence: None)
  Receive Date: 20091026
  Receipt Date: 20091013
  Transmission Date: 20100525
  Serious: Yes (Life-Threatening, Hospitalization, Other)
  Sender: FDA-Public Use
  Company Number: ADR37442009

PATIENT
  Age: 24 Year
  Sex: Male

DRUGS (12)
  1. SIMVASTATIN [Suspect]
     Dosage: 10 MG DAILY, ORAL USE
     Route: 048
     Dates: start: 20040416
  2. ADALAT [Concomitant]
  3. SIROLIMUS [Concomitant]
  4. AZITHROMYCIN [Concomitant]
  5. COTRIM [Concomitant]
  6. FERROUS GLUCONATE [Concomitant]
  7. FUROSEMIDE [Concomitant]
  8. LANTUS [Concomitant]
  9. NOVORAPID [Concomitant]
  10. OMEPRAZOLE [Concomitant]
  11. PREDNISOLONE [Concomitant]
  12. TACROLIMUS [Concomitant]

REACTIONS (2)
  - NEPHROTIC SYNDROME [None]
  - RENAL FAILURE CHRONIC [None]
